FAERS Safety Report 6987794-6 (Version None)
Quarter: 2010Q3

REPORT INFORMATION
  Report Type: 
  Country: None (occurrence: None)
  Receive Date: 20100914
  Receipt Date: 20100109
  Transmission Date: 20110219
  Serious: Yes (Hospitalization)
  Sender: FDA-Public Use
  Company Number: ZA-GDP-10408919

PATIENT
  Age: 65 Year
  Sex: Male

DRUGS (1)
  1. CLOBEX [Suspect]
     Indication: SEBORRHOEIC DERMATITIS
     Dosage: TOPICAL

REACTIONS (1)
  - DYSPNOEA [None]
